FAERS Safety Report 4398362-7 (Version None)
Quarter: 2004Q3

REPORT INFORMATION
  Report Type: 
  Country: None (occurrence: None)
  Receive Date: 20040714
  Receipt Date: 20040714
  Transmission Date: 20050211
  Serious: Yes (Life-Threatening, Hospitalization)
  Sender: FDA-Public Use
  Company Number: None

PATIENT
  Sex: Male
  Weight: 66.2252 kg

DRUGS (6)
  1. CETUXIMAB [Suspect]
     Indication: COLON CANCER
     Dates: start: 20040701
  2. MORPHINE [Concomitant]
  3. LORAZEPAM [Concomitant]
  4. SEPTRA DS [Concomitant]
  5. PRILOSEC [Concomitant]
  6. TIZENIDINE [Concomitant]

REACTIONS (4)
  - ASTHENIA [None]
  - HYPERHIDROSIS [None]
  - HYPOTENSION [None]
  - PALLOR [None]
